FAERS Safety Report 21804332 (Version 2)
Quarter: 2023Q1

REPORT INFORMATION
  Report Type: Report from Study
  Country: FR (occurrence: None)
  Receive Date: 20230102
  Receipt Date: 20230327
  Transmission Date: 20230418
  Serious: Yes (Other)
  Sender: FDA-Public Use
  Company Number: FR-ROCHE-3254260

PATIENT
  Age: 59 Year
  Sex: Female

DRUGS (2)
  1. ATEZOLIZUMAB [Suspect]
     Active Substance: ATEZOLIZUMAB
     Indication: Cervix carcinoma
     Dosage: LAST CYCLE OF TREATMENT (C14) WAS RECEIVED AS FOLLOW: CUMULATIVE DOSE OF 16800 MG
     Route: 041
     Dates: start: 20220316, end: 20221214
  2. CISPLATIN [Suspect]
     Active Substance: CISPLATIN
     Indication: Cervix carcinoma
     Dosage: LAST CYCLE OF TREATMENT (C14) WAS RECEIVED AS FOLLOW: CUMULATIVE DOSE OF 345 MG
     Route: 042
     Dates: start: 20220316, end: 20220413

REACTIONS (1)
  - Thyroid mass [Not Recovered/Not Resolved]

NARRATIVE: CASE EVENT DATE: 20221122
